FAERS Safety Report 9577878 (Version 2)
Quarter: 2013Q4

REPORT INFORMATION
  Report Type: Spontaneous
  Country: US (occurrence: US)
  Receive Date: 20131001
  Receipt Date: 20131001
  Transmission Date: 20140711
  Serious: No
  Sender: FDA-Public Use
  Company Number: US-AMGEN-USASP2013002149

PATIENT
  Age: 64 Year
  Sex: Female
  Weight: 62.59 kg

DRUGS (6)
  1. ENBREL [Suspect]
     Indication: RHEUMATOID ARTHRITIS
     Dosage: 50 MG, QWK
     Route: 058
  2. PREDNISONE [Concomitant]
     Dosage: 1 MG, UNK
  3. CITRUCEL [Concomitant]
     Dosage: UNK
  4. ESTRADIOL [Concomitant]
     Dosage: 0.025 MG, UNK
  5. FISH OIL [Concomitant]
     Dosage: UNK
  6. CALCIUM W/VITAMIN D                /00944201/ [Concomitant]
     Dosage: 1000 UNK, UNK

REACTIONS (4)
  - Nasal dryness [Unknown]
  - Nasal discomfort [Unknown]
  - Nasal congestion [Unknown]
  - Nasopharyngitis [Unknown]
